FAERS Safety Report 9369331 (Version 2)
Quarter: 2013Q3

REPORT INFORMATION
  Report Type: Spontaneous
  Country: AU (occurrence: AU)
  Receive Date: 20130626
  Receipt Date: 20130708
  Transmission Date: 20140515
  Serious: Yes (Hospitalization, Other)
  Sender: FDA-Public Use
  Company Number: AU-AMGEN-AUSSP2013043950

PATIENT
  Age: 87 Year
  Sex: Female

DRUGS (4)
  1. SENSIPAR [Suspect]
     Indication: HYPERPARATHYROIDISM PRIMARY
     Dosage: 30 MG, BID
  2. IMDUR [Concomitant]
  3. ZOCOR [Concomitant]
  4. WARFARIN [Concomitant]
     Dosage: 4 MG, QD

REACTIONS (1)
  - Pulmonary embolism [Recovered/Resolved]
